FAERS Safety Report 13047300 (Version 1)
Quarter: 2016Q4

REPORT INFORMATION
  Report Type: Spontaneous
  Country: GR (occurrence: GR)
  Receive Date: 20161220
  Receipt Date: 20161220
  Transmission Date: 20170207
  Serious: Yes (Other)
  Sender: FDA-Public Use
  Company Number: PHHY2016GR172942

PATIENT
  Age: 9 Year
  Sex: Female

DRUGS (1)
  1. TRILEPTAL [Suspect]
     Active Substance: OXCARBAZEPINE
     Indication: EPILEPSY
     Dosage: 5 ML, BID (5 MG IN THE MORNING AND 5 MG AT NIGHT)
     Route: 048

REACTIONS (5)
  - Stomatitis [Unknown]
  - Tongue discolouration [Unknown]
  - Lip swelling [Unknown]
  - Swollen tongue [Unknown]
  - Mastication disorder [Unknown]

NARRATIVE: CASE EVENT DATE: 2016
